FAERS Safety Report 6264974-9 (Version None)
Quarter: 2009Q3

REPORT INFORMATION
  Report Type: 
  Country: None (occurrence: None)
  Receive Date: 20090709
  Receipt Date: 20090709
  Transmission Date: 20100115
  Serious: Yes (Hospitalization)
  Sender: FDA-Public Use
  Company Number: None

PATIENT
  Age: 54 Year
  Sex: Female

DRUGS (3)
  1. BEVACIZUMAB [Suspect]
     Indication: BREAST CANCER METASTATIC
     Dosage: 2 CYCLES
  2. CARBOPLATIN [Suspect]
     Dosage: 3 CYCLES
  3. PACLITAXEL [Suspect]
     Dosage: 3 CYCLES

REACTIONS (1)
  - PNEUMOTHORAX [None]
